FAERS Safety Report 18754440 (Version 1)
Quarter: 2021Q1

REPORT INFORMATION
  Report Type: Spontaneous
  Country: US (occurrence: US)
  Receive Date: 20210119
  Receipt Date: 20210119
  Transmission Date: 20210419
  Serious: Yes (Hospitalization, Other)
  Sender: FDA-Public Use
  Company Number: US-ALKEM LABORATORIES LIMITED-US-ALKEM-2021-00027

PATIENT
  Age: 65 Year
  Sex: Female

DRUGS (1)
  1. LINEZOLID. [Suspect]
     Active Substance: LINEZOLID
     Indication: PRODUCT USED FOR UNKNOWN INDICATION
     Dosage: UNK
     Route: 065

REACTIONS (6)
  - Lactic acidosis [Recovered/Resolved]
  - Abdominal distension [Unknown]
  - Ascites [Unknown]
  - Metabolic acidosis [Recovered/Resolved]
  - Toxicity to various agents [Unknown]
  - Abdominal pain [Unknown]
